FAERS Safety Report 7111195-3 (Version None)
Quarter: 2010Q4

REPORT INFORMATION
  Report Type: 
  Country: None (occurrence: None)
  Receive Date: 20101118
  Receipt Date: 20101004
  Transmission Date: 20110411
  Serious: Yes (Death, Hospitalization, Other)
  Sender: FDA-Public Use
  Company Number: US-BAXTER-2010BH003318

PATIENT
  Age: 61 Year
  Sex: Male
  Weight: 85 kg

DRUGS (83)
  1. HEPARIN SODIUM INJECTION [Suspect]
     Indication: HEART VALVE OPERATION
     Route: 042
     Dates: start: 20080205, end: 20080205
  2. HEPARIN SODIUM INJECTION [Suspect]
     Indication: PROPHYLAXIS
     Route: 042
     Dates: start: 20080205, end: 20080205
  3. HEPARIN SODIUM INJECTION [Suspect]
     Indication: HAEMODIALYSIS
     Route: 042
     Dates: start: 20080205, end: 20080205
  4. HEPARIN SODIUM INJECTION [Suspect]
     Indication: CATHETER PLACEMENT
     Route: 042
     Dates: start: 20080205, end: 20080205
  5. HEPARIN SODIUM INJECTION [Suspect]
     Route: 042
     Dates: start: 20080205, end: 20080205
  6. HEPARIN SODIUM INJECTION [Suspect]
     Route: 042
     Dates: start: 20080205, end: 20080205
  7. HEPARIN SODIUM INJECTION [Suspect]
     Route: 042
     Dates: start: 20080205, end: 20080205
  8. HEPARIN SODIUM INJECTION [Suspect]
     Route: 042
     Dates: start: 20080205, end: 20080205
  9. HEPARIN SODIUM INJECTION [Suspect]
     Route: 058
     Dates: start: 20080205, end: 20080418
  10. HEPARIN SODIUM INJECTION [Suspect]
     Route: 058
     Dates: start: 20080205, end: 20080418
  11. HEPARIN SODIUM INJECTION [Suspect]
     Route: 058
     Dates: start: 20080205, end: 20080418
  12. HEPARIN SODIUM INJECTION [Suspect]
     Route: 058
     Dates: start: 20080205, end: 20080418
  13. HEPARIN SODIUM INJECTION [Suspect]
     Route: 042
     Dates: start: 20080206, end: 20080418
  14. HEPARIN SODIUM INJECTION [Suspect]
     Route: 042
     Dates: start: 20080206, end: 20080418
  15. HEPARIN SODIUM INJECTION [Suspect]
     Route: 042
     Dates: start: 20080206, end: 20080418
  16. HEPARIN SODIUM INJECTION [Suspect]
     Route: 042
     Dates: start: 20080206, end: 20080418
  17. HEPARIN SODIUM INJECTION [Suspect]
     Route: 042
     Dates: start: 20080226, end: 20080226
  18. HEPARIN SODIUM INJECTION [Suspect]
     Route: 042
     Dates: start: 20080226, end: 20080226
  19. HEPARIN SODIUM INJECTION [Suspect]
     Route: 042
     Dates: start: 20080226, end: 20080226
  20. HEPARIN SODIUM INJECTION [Suspect]
     Route: 042
     Dates: start: 20080226, end: 20080226
  21. HEPARIN SODIUM INJECTION [Suspect]
     Route: 058
     Dates: start: 20080226, end: 20080226
  22. HEPARIN SODIUM INJECTION [Suspect]
     Route: 058
     Dates: start: 20080226, end: 20080226
  23. HEPARIN SODIUM INJECTION [Suspect]
     Route: 058
     Dates: start: 20080226, end: 20080226
  24. HEPARIN SODIUM INJECTION [Suspect]
     Route: 058
     Dates: start: 20080226, end: 20080226
  25. HEPARIN SODIUM INJECTION [Suspect]
     Route: 042
     Dates: start: 20080312, end: 20080312
  26. HEPARIN SODIUM INJECTION [Suspect]
     Route: 042
     Dates: start: 20080312, end: 20080312
  27. HEPARIN SODIUM INJECTION [Suspect]
     Route: 042
     Dates: start: 20080312, end: 20080312
  28. HEPARIN SODIUM INJECTION [Suspect]
     Route: 042
     Dates: start: 20080312, end: 20080312
  29. CARVEDILOL [Concomitant]
     Indication: PRODUCT USED FOR UNKNOWN INDICATION
     Route: 065
  30. HYDRALAZINE [Concomitant]
     Indication: PRODUCT USED FOR UNKNOWN INDICATION
     Route: 065
  31. ISOSORBIDE MONONITRATE [Concomitant]
     Indication: PRODUCT USED FOR UNKNOWN INDICATION
     Route: 065
  32. LASIX [Concomitant]
     Indication: PRODUCT USED FOR UNKNOWN INDICATION
     Route: 065
  33. RENAGEL [Concomitant]
     Indication: PRODUCT USED FOR UNKNOWN INDICATION
     Route: 065
  34. AMITRIPTYLINE HCL [Concomitant]
     Indication: PRODUCT USED FOR UNKNOWN INDICATION
     Route: 065
  35. ACETAMINOPHEN [Concomitant]
     Indication: PRODUCT USED FOR UNKNOWN INDICATION
     Route: 065
  36. ALBUMIN (HUMAN) [Concomitant]
     Indication: PRODUCT USED FOR UNKNOWN INDICATION
     Route: 065
  37. ALBUTEROL [Concomitant]
     Indication: PRODUCT USED FOR UNKNOWN INDICATION
     Route: 065
  38. ALPRAZOLAM [Concomitant]
     Indication: PRODUCT USED FOR UNKNOWN INDICATION
     Route: 065
  39. ACTIVASE [Concomitant]
     Indication: PRODUCT USED FOR UNKNOWN INDICATION
     Route: 065
  40. ALUMINUM HYDROXIDE GEL [Concomitant]
     Indication: PRODUCT USED FOR UNKNOWN INDICATION
     Route: 065
  41. AMIODARONE [Concomitant]
     Indication: PRODUCT USED FOR UNKNOWN INDICATION
     Route: 065
  42. AMLODIPINE BESYLATE [Concomitant]
     Indication: PRODUCT USED FOR UNKNOWN INDICATION
     Route: 065
  43. ASPIRIN [Concomitant]
     Indication: PRODUCT USED FOR UNKNOWN INDICATION
     Route: 065
  44. BISACODYL [Concomitant]
     Indication: PRODUCT USED FOR UNKNOWN INDICATION
     Route: 065
  45. CALCIUM CHLORIDE ^SPOFA^ [Concomitant]
     Indication: PRODUCT USED FOR UNKNOWN INDICATION
     Route: 065
  46. SENNOSIDE A+B CALCIUM [Concomitant]
     Indication: PRODUCT USED FOR UNKNOWN INDICATION
     Route: 065
  47. CASPOFUNGIN ACETATE [Concomitant]
     Indication: PRODUCT USED FOR UNKNOWN INDICATION
     Route: 065
  48. CLONIDINE HYDROCHLORIDE [Concomitant]
     Indication: PRODUCT USED FOR UNKNOWN INDICATION
     Route: 065
  49. CEFAZOLIN SODIUM [Concomitant]
     Indication: PRODUCT USED FOR UNKNOWN INDICATION
     Route: 065
  50. CEFEPIME [Concomitant]
     Indication: PRODUCT USED FOR UNKNOWN INDICATION
     Route: 065
  51. CHLORHEXIDINE GLUCONATE [Concomitant]
     Indication: PRODUCT USED FOR UNKNOWN INDICATION
     Route: 065
  52. CISATRACURIUM BESILATE [Concomitant]
     Indication: PRODUCT USED FOR UNKNOWN INDICATION
     Route: 065
  53. DESMOPRESSIN ACETATE [Concomitant]
     Indication: PRODUCT USED FOR UNKNOWN INDICATION
     Route: 065
  54. GLUCOSE [Concomitant]
     Indication: PRODUCT USED FOR UNKNOWN INDICATION
     Route: 065
  55. DIFLUCAN [Concomitant]
     Indication: PRODUCT USED FOR UNKNOWN INDICATION
     Route: 065
  56. DILTIAZEM HYDROCHLORIDE [Concomitant]
     Indication: PRODUCT USED FOR UNKNOWN INDICATION
     Route: 065
  57. DIPHENHYDRAMINE HYDROCHLORIDE [Concomitant]
     Indication: PRODUCT USED FOR UNKNOWN INDICATION
     Route: 065
  58. DOBUTAMINE [Concomitant]
     Indication: PRODUCT USED FOR UNKNOWN INDICATION
     Route: 065
  59. DOCUSATE SODIUM [Concomitant]
     Indication: PRODUCT USED FOR UNKNOWN INDICATION
     Route: 065
  60. DOPAMINE [Concomitant]
     Indication: PRODUCT USED FOR UNKNOWN INDICATION
     Route: 065
  61. EPOGEN [Concomitant]
     Indication: PRODUCT USED FOR UNKNOWN INDICATION
     Route: 065
  62. EPOGEN [Concomitant]
     Route: 065
  63. ESOMEPRAZOLE [Concomitant]
     Indication: PRODUCT USED FOR UNKNOWN INDICATION
     Route: 065
  64. ETOMIDATE [Concomitant]
     Indication: PRODUCT USED FOR UNKNOWN INDICATION
     Route: 065
  65. FAMOTIDINE [Concomitant]
     Indication: PRODUCT USED FOR UNKNOWN INDICATION
     Route: 065
  66. FENTANYL CITRATE [Concomitant]
     Indication: PRODUCT USED FOR UNKNOWN INDICATION
     Route: 065
  67. DALTEPARIN SODIUM [Concomitant]
     Indication: PRODUCT USED FOR UNKNOWN INDICATION
     Route: 065
  68. GLYCERIN [Concomitant]
     Indication: PRODUCT USED FOR UNKNOWN INDICATION
     Route: 065
  69. HALOPERIDOL LACTATE [Concomitant]
     Indication: PRODUCT USED FOR UNKNOWN INDICATION
     Route: 065
  70. HYDROCODONE [Concomitant]
     Indication: PRODUCT USED FOR UNKNOWN INDICATION
     Route: 065
  71. INSULIN GLARGINE [Concomitant]
     Indication: PRODUCT USED FOR UNKNOWN INDICATION
     Route: 065
  72. INSULIN ASPART [Concomitant]
     Indication: PRODUCT USED FOR UNKNOWN INDICATION
     Route: 065
  73. IRON SUCROSE [Concomitant]
     Indication: PRODUCT USED FOR UNKNOWN INDICATION
     Route: 065
  74. KEPPRA [Concomitant]
     Indication: PRODUCT USED FOR UNKNOWN INDICATION
     Route: 065
  75. LACTULOSE [Concomitant]
     Indication: PRODUCT USED FOR UNKNOWN INDICATION
     Route: 065
  76. LANOLIN [Concomitant]
     Indication: PRODUCT USED FOR UNKNOWN INDICATION
     Route: 065
  77. LEVAQUIN [Concomitant]
     Indication: PRODUCT USED FOR UNKNOWN INDICATION
     Route: 065
  78. LIDOCAINE HYDROCHLORIDE [Concomitant]
     Indication: PRODUCT USED FOR UNKNOWN INDICATION
     Route: 065
  79. ATORVASTATIN CALCIUM [Concomitant]
     Indication: PRODUCT USED FOR UNKNOWN INDICATION
     Route: 065
  80. LORAZEPAM [Concomitant]
     Indication: PRODUCT USED FOR UNKNOWN INDICATION
     Route: 065
  81. LOVENOX [Concomitant]
     Indication: PRODUCT USED FOR UNKNOWN INDICATION
     Route: 065
  82. MAGNESIUM SULFATE [Concomitant]
     Indication: PRODUCT USED FOR UNKNOWN INDICATION
     Route: 065
  83. MIDAZOLAM HCL [Concomitant]
     Indication: PRODUCT USED FOR UNKNOWN INDICATION
     Route: 065

REACTIONS (21)
  - ANAEMIA [None]
  - BRADYCARDIA [None]
  - CONDITION AGGRAVATED [None]
  - COUGH [None]
  - DYSPNOEA [None]
  - ENCEPHALOPATHY [None]
  - HYPERHIDROSIS [None]
  - HYPERKALAEMIA [None]
  - HYPOTENSION [None]
  - HYPOVOLAEMIA [None]
  - LEUKOCYTOSIS [None]
  - LUNG INFECTION PSEUDOMONAL [None]
  - MASTOIDITIS [None]
  - NAUSEA [None]
  - PLATELET COUNT DECREASED [None]
  - POSTOPERATIVE FEVER [None]
  - RENAL FAILURE CHRONIC [None]
  - RESPIRATORY FAILURE [None]
  - SEPSIS [None]
  - SEPTIC SHOCK [None]
  - VOMITING [None]
